FAERS Safety Report 6616251-1 (Version None)
Quarter: 2010Q1

REPORT INFORMATION
  Report Type: 
  Country: None (occurrence: None)
  Receive Date: 20100305
  Receipt Date: 20100223
  Transmission Date: 20100710
  Serious: Yes (Death)
  Sender: FDA-Public Use
  Company Number: CA-WATSON-2010-02144

PATIENT
  Sex: Female

DRUGS (2)
  1. TAMOXIFEN CITRATE [Suspect]
     Indication: BREAST CANCER
     Dosage: UNK
  2. PAROXETINE HCL [Suspect]
     Indication: DEPRESSION
     Dosage: UNK

REACTIONS (2)
  - BREAST CANCER [None]
  - DRUG INTERACTION [None]
